FAERS Safety Report 16061962 (Version 1)
Quarter: 2019Q2

REPORT INFORMATION
  Report Type: Spontaneous
  Country: US (occurrence: US)
  Receive Date: 20190312
  Receipt Date: 20190312
  Transmission Date: 20190711
  Serious: Yes (Hospitalization)
  Sender: FDA-Public Use
  Company Number: None

PATIENT
  Sex: Female

DRUGS (4)
  1. HUMIRA [Suspect]
     Active Substance: ADALIMUMAB
     Indication: HIDRADENITIS
     Dosage: ?          OTHER FREQUENCY:EVERY WEEK;?
     Route: 058
  2. DOXYCYCLINE HYC 100MG CAPSULES [Concomitant]
     Dates: start: 20190301
  3. HYDROCORTISONE CREAM 2.5% [Concomitant]
     Dates: start: 20181025
  4. NORETHINDRONE 5MG TABLETS [Concomitant]
     Active Substance: NORETHINDRONE
     Dates: start: 20190108

REACTIONS (1)
  - Condition aggravated [None]
